FAERS Safety Report 10163277 (Version 1)
Quarter: 2014Q2

REPORT INFORMATION
  Report Type: Spontaneous
  Country: US (occurrence: US)
  Receive Date: 20140509
  Receipt Date: 20140509
  Transmission Date: 20141212
  Serious: Yes (Other)
  Sender: FDA-Public Use
  Company Number: US-PFIZER INC-2014125388

PATIENT
  Age: 57 Year
  Sex: Male
  Weight: 99.77 kg

DRUGS (5)
  1. VIAGRA [Suspect]
     Indication: ERECTILE DYSFUNCTION
     Dosage: 50 MG, AS NEEDED
     Dates: start: 201310
  2. VIAGRA [Suspect]
     Dosage: 100 MG, AS NEEDED
  3. DEPAKOTE [Concomitant]
     Indication: BIPOLAR DISORDER
     Dosage: 500 MG, 2X/DAY
  4. WELLBUTRIN [Concomitant]
     Indication: DEPRESSION
     Dosage: 200 MG, 2X/DAY
  5. KLONOPIN [Concomitant]
     Indication: ANXIETY
     Dosage: 4 MG, DAILY

REACTIONS (3)
  - Angina pectoris [Recovered/Resolved]
  - Chest pain [Recovered/Resolved]
  - Respiratory rate increased [Recovered/Resolved]
